FAERS Safety Report 8225730-5 (Version None)
Quarter: 2012Q1

REPORT INFORMATION
  Report Type: 
  Country: None (occurrence: None)
  Receive Date: 20120321
  Receipt Date: 20120315
  Transmission Date: 20120608
  Serious: Yes (Other)
  Sender: FDA-Public Use
  Company Number: GB-PFIZER INC-2012069590

PATIENT
  Age: 25 Year
  Sex: Female

DRUGS (3)
  1. AZATHIOPRINE [Concomitant]
     Dosage: 75 MG, UNK
  2. PREDNISOLONE [Concomitant]
     Dosage: 10 MG, UNK
  3. SIROLIMUS [Suspect]
     Indication: RENAL IMPAIRMENT
     Dosage: UNK

REACTIONS (2)
  - ASPERGILLOSIS [None]
  - PULMONARY CAVITATION [None]
